FAERS Safety Report 11503137 (Version 2)
Quarter: 2016Q2

REPORT INFORMATION
  Report Type: Spontaneous
  Country: US (occurrence: US)
  Receive Date: 20150914
  Receipt Date: 20160506
  Transmission Date: 20160815
  Serious: Yes (Death)
  Sender: FDA-Public Use
  Company Number: US-ASTELLAS-2015US030894

PATIENT
  Age: 69 Year
  Sex: Male

DRUGS (2)
  1. XTANDI [Suspect]
     Active Substance: ENZALUTAMIDE
     Indication: HORMONE-REFRACTORY PROSTATE CANCER
     Route: 048
     Dates: start: 20150608, end: 20150826
  2. XTANDI [Suspect]
     Active Substance: ENZALUTAMIDE
     Dosage: 160 MG, ONCE DAILY (04 CAPSULES OF 40 MG)
     Route: 048
     Dates: end: 20151029

REACTIONS (6)
  - Dry mouth [Unknown]
  - Visual impairment [Unknown]
  - Hot flush [Unknown]
  - Drug ineffective [Unknown]
  - Visual impairment [Unknown]
  - Death [Fatal]

NARRATIVE: CASE EVENT DATE: 20150615
